FAERS Safety Report 14937892 (Version 1)
Quarter: 2018Q2

REPORT INFORMATION
  Report Type: Spontaneous
  Country: US (occurrence: US)
  Receive Date: 20180507
  Receipt Date: 20180507
  Transmission Date: 20180711
  Serious: Yes (Other)
  Sender: FDA-Public Use
  Company Number: None

PATIENT
  Age: 36 Year
  Sex: Male
  Weight: 68.2 kg

DRUGS (6)
  1. ANTACID+DIPHENHYDRAMINE+NYSTATIN (1:1:1 RATIO) MOUTHWASH 4 TIMES DAILY [Concomitant]
     Dates: start: 20180417, end: 20180504
  2. MEFENANIDE 5% (50 G) IN STERILE WATER TO BE POURED OVER LEFT LOWER EXT [Concomitant]
     Dates: start: 20180417, end: 20180504
  3. OXANDROLONE. [Suspect]
     Active Substance: OXANDROLONE
     Indication: WEIGHT INCREASED
     Route: 048
     Dates: start: 20180427, end: 20180430
  4. FLUDROCORTISONE 100 MCG BY MOUTH DAILY [Concomitant]
     Dates: start: 20180417, end: 20180507
  5. OXYCODONE/APAP 7.5/325 MG Q6H PRN PAIN [Concomitant]
     Dates: start: 20180417, end: 20180504
  6. ENOXAPARIN 40 MG SUBCUT. DAILY [Concomitant]
     Dates: start: 20180417, end: 20180507

REACTIONS (1)
  - Hyperkalaemia [None]

NARRATIVE: CASE EVENT DATE: 20180430
